FAERS Safety Report 6360450-3 (Version None)
Quarter: 2009Q3

REPORT INFORMATION
  Report Type: 
  Country: None (occurrence: None)
  Receive Date: 20090917
  Receipt Date: 20090909
  Transmission Date: 20100115
  Serious: Yes (Other)
  Sender: FDA-Public Use
  Company Number: US-GENENTECH-290119

PATIENT
  Age: 45 Year
  Sex: Female

DRUGS (4)
  1. HERCEPTIN [Suspect]
     Indication: BREAST CANCER
     Dosage: 2 MG/KG, 1/WEEK
     Route: 042
     Dates: start: 20080301, end: 20090331
  2. HERCEPTIN [Suspect]
     Dosage: 6 MG/KG, Q3W
     Route: 042
  3. DOCETAXEL [Suspect]
     Indication: BREAST CANCER
     Dosage: UNK
     Dates: start: 20080301
  4. CARBOPLATIN [Suspect]
     Indication: BREAST CANCER
     Dosage: UNK
     Dates: start: 20080301

REACTIONS (1)
  - DEMYELINATION [None]
